FAERS Safety Report 24779994 (Version 1)
Quarter: 2024Q4

REPORT INFORMATION
  Report Type: Report from Study
  Country: UY (occurrence: UY)
  Receive Date: 20241227
  Receipt Date: 20241227
  Transmission Date: 20250115
  Serious: No
  Sender: ROCHE
  Company Number: UY-ROCHE-10000153089

PATIENT
  Age: 36 Year
  Sex: Female

DRUGS (3)
  1. OCREVUS [Suspect]
     Active Substance: OCRELIZUMAB
     Indication: Primary progressive multiple sclerosis
     Dosage: MOST RECENT DOSE 25/JUN/2024
     Route: 065
     Dates: start: 201903
  2. ESCITALOPRAM [Concomitant]
     Active Substance: ESCITALOPRAM OXALATE
     Indication: Product used for unknown indication
     Dates: end: 202410
  3. SERTRALINE [Concomitant]
     Active Substance: SERTRALINE HYDROCHLORIDE
     Dosage: RECEIVED ON AN UNKNOWN DATE IN OCTOBER

REACTIONS (6)
  - Maternal exposure before pregnancy [Unknown]
  - Escherichia urinary tract infection [Unknown]
  - Blood glucose increased [Unknown]
  - Urine abnormality [Unknown]
  - Nitrite urine present [Unknown]
  - Vitamin D deficiency [Unknown]

NARRATIVE: CASE EVENT DATE: 20241015
